FAERS Safety Report 14015315 (Version 3)
Quarter: 2019Q2

REPORT INFORMATION
  Report Type: Report from Study
  Country: US (occurrence: US)
  Receive Date: 20170927
  Receipt Date: 20190528
  Transmission Date: 20190711
  Serious: No
  Sender: FDA-Public Use
  Company Number: PHHY2014US184946

PATIENT
  Age: 38 Year
  Sex: Female

DRUGS (1)
  1. GILENYA [Suspect]
     Active Substance: FINGOLIMOD HYDROCHLORIDE
     Indication: MULTIPLE SCLEROSIS
     Dosage: UNK, QD
     Route: 048

REACTIONS (24)
  - Insomnia [Unknown]
  - Amnesia [Unknown]
  - Dysuria [Recovered/Resolved]
  - Gait disturbance [Recovered/Resolved]
  - Diarrhoea [Recovered/Resolved]
  - Acne [Unknown]
  - Contusion [Unknown]
  - Headache [Recovered/Resolved]
  - Pain in extremity [Unknown]
  - Dizziness [Unknown]
  - Asthenia [Unknown]
  - Myalgia [Unknown]
  - Alopecia [Unknown]
  - Balance disorder [Unknown]
  - Diarrhoea [Unknown]
  - Fatigue [Unknown]
  - Temperature intolerance [Unknown]
  - Nausea [Unknown]
  - Arthralgia [Unknown]
  - Speech disorder [Unknown]
  - Dysphagia [Unknown]
  - Dizziness [Unknown]
  - Paraesthesia [Unknown]
  - Vertigo [Unknown]

NARRATIVE: CASE EVENT DATE: 20170728
